FAERS Safety Report 17582639 (Version 1)
Quarter: 2020Q1

REPORT INFORMATION
  Report Type: Spontaneous
  Country: GB (occurrence: GB)
  Receive Date: 20200325
  Receipt Date: 20200325
  Transmission Date: 20200409
  Serious: Yes (Other)
  Sender: FDA-Public Use
  Company Number: GB-ALLERGAN-2012632US

PATIENT
  Sex: Female

DRUGS (9)
  1. BISOPROLOL [Concomitant]
     Active Substance: BISOPROLOL
  2. RAMIPRIL. [Concomitant]
     Active Substance: RAMIPRIL
  3. THYROXINE [Concomitant]
     Active Substance: LEVOTHYROXINE
  4. ZIMSTAT [Concomitant]
     Active Substance: SIMVASTATIN
  5. OXYBUTYNIN PCH - BP [Suspect]
     Active Substance: OXYBUTYNIN
     Indication: URINARY INCONTINENCE
     Dosage: PUT THE PATCH ON SATURDAY NIGHT AND ON TUESDAY CHANGES IT
     Route: 062
  6. TRAMADOL. [Concomitant]
     Active Substance: TRAMADOL
  7. GLYCOPYRRONIUM BROMIDE [Concomitant]
     Active Substance: GLYCOPYRRONIUM
  8. MONOMIL XL [Concomitant]
     Active Substance: ISOSORBIDE MONONITRATE
  9. PARACETAMOL [Concomitant]
     Active Substance: ACETAMINOPHEN

REACTIONS (6)
  - Feeling abnormal [Not Recovered/Not Resolved]
  - Fatigue [Not Recovered/Not Resolved]
  - Hyperthyroidism [Not Recovered/Not Resolved]
  - Cough [Not Recovered/Not Resolved]
  - Application site erythema [Not Recovered/Not Resolved]
  - Thinking abnormal [Not Recovered/Not Resolved]
